FAERS Safety Report 5922568-6 (Version None)
Quarter: 2008Q4

REPORT INFORMATION
  Report Type: 
  Country: None (occurrence: None)
  Receive Date: 20081017
  Receipt Date: 20081006
  Transmission Date: 20090506
  Serious: Yes (Other)
  Sender: FDA-Public Use
  Company Number: US-ROCHE-509813

PATIENT
  Age: 59 Year
  Sex: Female

DRUGS (3)
  1. VALIUM [Suspect]
     Indication: NEUROTRANSMITTER LEVEL ALTERED
     Dosage: FORM: PILL. CO-INDICATION:CHRONIC ANXIETY, AGOROPHOBIA. INBETWEEN REDUCED TO 3/4 PILL THRICE DAILY
     Route: 065
     Dates: start: 19730101
  2. BETA CAROTENE [Concomitant]
  3. LOMOTIL [Concomitant]
     Dosage: WHILE SHE TRAVELS.

REACTIONS (3)
  - BREAST CANCER STAGE I [None]
  - CONVULSION [None]
  - DEPENDENCE [None]
